FAERS Safety Report 6088444-6 (Version None)
Quarter: 2009Q1

REPORT INFORMATION
  Report Type: 
  Country: None (occurrence: None)
  Receive Date: 20090224
  Receipt Date: 20090212
  Transmission Date: 20090719
  Serious: Yes (Life-Threatening)
  Sender: FDA-Public Use
  Company Number: GB-PFIZER INC-2009169602

PATIENT

DRUGS (2)
  1. SULFASALAZINE [Suspect]
     Indication: ARTHRITIS
     Route: 048
     Dates: start: 20080909, end: 20081201
  2. MELOXICAM [Concomitant]
     Indication: ARTHRITIS
     Route: 048

REACTIONS (2)
  - DEPRESSION [None]
  - SUICIDAL IDEATION [None]
